FAERS Safety Report 14012423 (Version 2)
Quarter: 2017Q4

REPORT INFORMATION
  Report Type: Report from Study
  Country: JP (occurrence: JP)
  Receive Date: 20170926
  Receipt Date: 20171117
  Transmission Date: 20180321
  Serious: Yes (Hospitalization)
  Sender: FDA-Public Use
  Company Number: JP-B.I. PHARMACEUTICALS,INC./RIDGEFIELD-2017-NB-002570

PATIENT
  Age: 83 Year
  Sex: Male
  Weight: 48.2 kg

DRUGS (6)
  1. MUCOFILIN [Concomitant]
     Indication: IDIOPATHIC PULMONARY FIBROSIS
     Route: 065
  2. BIBF 1120 [Suspect]
     Active Substance: NINTEDANIB
     Indication: IDIOPATHIC PULMONARY FIBROSIS
     Route: 048
     Dates: start: 20161016, end: 20161101
  3. BIBF 1120 [Suspect]
     Active Substance: NINTEDANIB
     Route: 048
     Dates: start: 20161114
  4. TAMSULOSIN HYDROCHLORIDE. [Concomitant]
     Active Substance: TAMSULOSIN HYDROCHLORIDE
     Indication: PRODUCT USED FOR UNKNOWN INDICATION
     Route: 065
  5. SENNOSIDE [Concomitant]
     Active Substance: SENNOSIDES
     Indication: PRODUCT USED FOR UNKNOWN INDICATION
     Route: 065
  6. DAIKENCHUTO [Concomitant]
     Active Substance: HERBALS
     Indication: PRODUCT USED FOR UNKNOWN INDICATION
     Route: 065

REACTIONS (1)
  - Diverticulitis intestinal haemorrhagic [Recovered/Resolved]

NARRATIVE: CASE EVENT DATE: 20161101
